FAERS Safety Report 13004005 (Version 1)
Quarter: 2016Q4

REPORT INFORMATION
  Report Type: Spontaneous
  Country: US (occurrence: US)
  Receive Date: 20161206
  Receipt Date: 20161206
  Transmission Date: 20170207
  Serious: No
  Sender: FDA-Public Use
  Company Number: US-JAZZ-2016-US-020317

PATIENT
  Sex: Male
  Weight: 59.41 kg

DRUGS (15)
  1. XYREM [Suspect]
     Active Substance: SODIUM OXYBATE
     Indication: NARCOLEPSY
     Dosage: 2.25 G, BID
     Route: 048
     Dates: start: 201311, end: 201311
  2. NUVIGIL [Concomitant]
     Active Substance: ARMODAFINIL
  3. VITAMIN D3 [Concomitant]
     Active Substance: CHOLECALCIFEROL
  4. NAPROXEN. [Concomitant]
     Active Substance: NAPROXEN
  5. XYREM [Suspect]
     Active Substance: SODIUM OXYBATE
     Indication: CATAPLEXY
     Dosage: DOSE ADJUSTMENT
     Route: 048
     Dates: start: 2013, end: 2013
  6. OMEGA-3 FISH OIL [Concomitant]
     Active Substance: FISH OIL\OMEGA-3 FATTY ACIDS
  7. WELLBUTRIN [Concomitant]
     Active Substance: BUPROPION HYDROCHLORIDE
  8. IBUPROFEN. [Concomitant]
     Active Substance: IBUPROFEN
  9. L-TRYPTOPHAN [Concomitant]
     Active Substance: TRYPTOPHAN
  10. LORATADINE. [Concomitant]
     Active Substance: LORATADINE
  11. NABUMETONE. [Concomitant]
     Active Substance: NABUMETONE
  12. VITAMIN C [Concomitant]
     Active Substance: ASCORBIC ACID
  13. FERROUS SULFATE. [Concomitant]
     Active Substance: FERROUS SULFATE
  14. XYREM [Suspect]
     Active Substance: SODIUM OXYBATE
     Dosage: 4.5 G, BID
     Route: 048
     Dates: start: 201312
  15. ACETAMINOPHEN. [Concomitant]
     Active Substance: ACETAMINOPHEN

REACTIONS (4)
  - Fatigue [Unknown]
  - Initial insomnia [Unknown]
  - Muscular weakness [Unknown]
  - Intentional product use issue [Unknown]
